FAERS Safety Report 6715367-9 (Version None)
Quarter: 2010Q2

REPORT INFORMATION
  Report Type: 
  Country: None (occurrence: None)
  Receive Date: 20100507
  Receipt Date: 20100507
  Transmission Date: 20101027
  Serious: Yes (Other)
  Sender: FDA-Public Use
  Company Number: None

PATIENT
  Age: 6 Year
  Sex: Male
  Weight: 16.7831 kg

DRUGS (1)
  1. CHILDREN'S TYLENOL PLUS [Suspect]
     Indication: PYREXIA
     Dosage: 10 ML 4HOURS PO
     Route: 048
     Dates: start: 20100310, end: 20100503

REACTIONS (3)
  - DRUG INEFFECTIVE [None]
  - PRODUCT QUALITY ISSUE [None]
  - PRODUCT TASTE ABNORMAL [None]
